FAERS Safety Report 9713061 (Version 1)
Quarter: 2013Q4

REPORT INFORMATION
  Report Type: Spontaneous
  Country: US (occurrence: US)
  Receive Date: 20131126
  Receipt Date: 20131126
  Transmission Date: 20140711
  Serious: No
  Sender: FDA-Public Use
  Company Number: US-BRISTOL-MYERS SQUIBB COMPANY-19400696

PATIENT
  Age: 66 Year
  Sex: Male
  Weight: 81.63 kg

DRUGS (9)
  1. BYDUREON [Suspect]
  2. METFORMIN [Concomitant]
  3. SINGULAIR [Concomitant]
  4. LIPITOR [Concomitant]
  5. LOSARTAN [Concomitant]
     Dosage: 100/1.25 MG QD
  6. FISH OIL [Concomitant]
  7. MULTIVITAMIN [Concomitant]
  8. ASPIRIN [Concomitant]
  9. FOLIC ACID [Concomitant]

REACTIONS (1)
  - Injection site haemorrhage [Recovered/Resolved]
